FAERS Safety Report 12162520 (Version 1)
Quarter: 2016Q1

REPORT INFORMATION
  Report Type: Other
  Country: FR (occurrence: FR)
  Receive Date: 20160309
  Receipt Date: 20160309
  Transmission Date: 20160526
  Serious: Yes (Life-Threatening, Hospitalization)
  Sender: FDA-Public Use
  Company Number: FR-MYLANLABS-2016M1009170

PATIENT

DRUGS (14)
  1. DEXAMETHASONE MYLAN [Suspect]
     Active Substance: DEXAMETHASONE
     Indication: FOLLICLE CENTRE LYMPHOMA, FOLLICULAR GRADE I, II, III
     Dosage: UNK
     Route: 042
     Dates: start: 201601
  2. OXALIPLATIN. [Suspect]
     Active Substance: OXALIPLATIN
     Indication: FOLLICLE CENTRE LYMPHOMA, FOLLICULAR GRADE I, II, III
     Dosage: UNK
     Dates: start: 201601
  3. RITUXIMAB [Suspect]
     Active Substance: RITUXIMAB
     Indication: FOLLICLE CENTRE LYMPHOMA, FOLLICULAR GRADE I, II, III
     Dosage: UNK
     Dates: start: 201601
  4. DEXAMETHASONE MYLAN [Suspect]
     Active Substance: DEXAMETHASONE
     Dosage: UNK
     Route: 042
     Dates: start: 20160112
  5. OXALIPLATIN. [Suspect]
     Active Substance: OXALIPLATIN
     Dosage: UNK
     Dates: start: 20160204
  6. CYTARABINE ACCORD [Suspect]
     Active Substance: CYTARABINE
     Dosage: UNK
     Dates: start: 20160205
  7. CYTARABINE ACCORD [Suspect]
     Active Substance: CYTARABINE
     Dosage: UNK
     Dates: start: 20160112
  8. CYTARABINE ACCORD [Suspect]
     Active Substance: CYTARABINE
     Dosage: UNK
     Dates: start: 20160204
  9. OXALIPLATIN. [Suspect]
     Active Substance: OXALIPLATIN
     Dosage: UNK
     Dates: start: 20160112
  10. RITUXIMAB [Suspect]
     Active Substance: RITUXIMAB
     Dosage: UNK
     Dates: start: 20160204
  11. DEXAMETHASONE MYLAN [Suspect]
     Active Substance: DEXAMETHASONE
     Dosage: UNK
     Dates: start: 20160204
  12. RITUXIMAB [Suspect]
     Active Substance: RITUXIMAB
     Dosage: UNK
     Dates: start: 20160112
  13. DEXAMETHASONE MYLAN [Suspect]
     Active Substance: DEXAMETHASONE
     Dosage: UNK
     Dates: start: 20160205
  14. CYTARABINE ACCORD [Suspect]
     Active Substance: CYTARABINE
     Indication: FOLLICLE CENTRE LYMPHOMA, FOLLICULAR GRADE I, II, III
     Dosage: UNK
     Dates: start: 201601

REACTIONS (10)
  - Cardiomegaly [Unknown]
  - Diarrhoea [Recovering/Resolving]
  - Hypoxia [Recovered/Resolved]
  - Cardio-respiratory arrest [Recovered/Resolved]
  - Hypokinesia [Unknown]
  - Pancytopenia [Recovered/Resolved]
  - Pyrexia [Recovering/Resolving]
  - Pulmonary oedema [Recovering/Resolving]
  - Gastrointestinal disorder [Recovering/Resolving]
  - Acute kidney injury [Recovered/Resolved]

NARRATIVE: CASE EVENT DATE: 201601
